FAERS Safety Report 6393027-4 (Version None)
Quarter: 2009Q4

REPORT INFORMATION
  Report Type: 
  Country: None (occurrence: None)
  Receive Date: 20091008
  Receipt Date: 20070705
  Transmission Date: 20100525
  Serious: Yes (Disabling, Other)
  Sender: FDA-Public Use
  Company Number: US-ASTRAZENECA-2006UW22406

PATIENT
  Age: 6727 Day
  Sex: Female
  Weight: 128.8 kg

DRUGS (5)
  1. SEROQUEL [Suspect]
     Indication: DEPRESSION
     Route: 048
     Dates: start: 19980101
  2. SEROQUEL [Suspect]
     Route: 048
     Dates: start: 20050302
  3. LIPITOR [Concomitant]
     Indication: BLOOD CHOLESTEROL INCREASED
  4. LIPITOR [Concomitant]
     Indication: HYPERLIPIDAEMIA
  5. DEPAKOTE [Concomitant]
     Dates: start: 20000101

REACTIONS (3)
  - DIABETES MELLITUS [None]
  - MENTAL RETARDATION [None]
  - MILD MENTAL RETARDATION [None]
